FAERS Safety Report 8769759 (Version 1)
Quarter: 2012Q4

REPORT INFORMATION
  Report Type: Report from Study
  Country: US (occurrence: US)
  Receive Date: 20120905
  Receipt Date: 20120905
  Transmission Date: 20130627
  Serious: Yes (Hospitalization)
  Sender: FDA-Public Use
  Company Number: US-BRISTOL-MYERS SQUIBB COMPANY-16906836

PATIENT
  Age: 54 Year
  Sex: Male
  Weight: 70 kg

DRUGS (5)
  1. ATAZANAVIR [Suspect]
     Indication: HIV INFECTION
     Dosage: Interrupt on 14Aug2012
18oct10-14Aug12(666D)
     Route: 048
     Dates: start: 20101018
  2. RITONAVIR [Suspect]
     Indication: HIV INFECTION
     Dosage: Interrupt on 14Aug2012
18oct10-14Aug12(666D)
     Route: 048
     Dates: start: 20101018
  3. TRUVADA [Suspect]
     Indication: HIV INFECTION
     Dosage: tabs
Interrupt on 14Aug2012
18oct10-14Aug12(666D)
     Route: 048
     Dates: start: 20101018
  4. LISINOPRIL + HCTZ [Concomitant]
     Dates: start: 20100415, end: 20120814
  5. ZOLPIDEM TARTRATE [Concomitant]
     Dates: start: 20111101, end: 20120814

REACTIONS (1)
  - Blood creatinine abnormal [Not Recovered/Not Resolved]
